FAERS Safety Report 10522285 (Version 2)
Quarter: 2014Q4

REPORT INFORMATION
  Report Type: Report from Study
  Country: US (occurrence: US)
  Receive Date: 20141016
  Receipt Date: 20141027
  Transmission Date: 20150528
  Serious: Yes (Hospitalization)
  Sender: FDA-Public Use
  Company Number: US-ACTELION-A-US2014-106395

PATIENT
  Age: 71 Year
  Sex: Female

DRUGS (12)
  1. SIMVASTATIN. [Concomitant]
     Active Substance: SIMVASTATIN
  2. ADCIRCA [Concomitant]
     Active Substance: TADALAFIL
  3. METOPROLOL [Concomitant]
     Active Substance: METOPROLOL
  4. PLAVIX [Concomitant]
     Active Substance: CLOPIDOGREL BISULFATE
  5. LEVOTHYROXINE [Concomitant]
     Active Substance: LEVOTHYROXINE
  6. BUSPIRONE [Concomitant]
     Active Substance: BUSPIRONE HYDROCHLORIDE
  7. FISH OIL [Concomitant]
     Active Substance: FISH OIL
  8. DIOVAN [Concomitant]
     Active Substance: VALSARTAN
  9. PROTONIX [Concomitant]
     Active Substance: PANTOPRAZOLE SODIUM
  10. RANEXA [Concomitant]
     Active Substance: RANOLAZINE
  11. TRACLEER [Suspect]
     Active Substance: BOSENTAN\BOSENTAN MONOHYDRATE
     Indication: PULMONARY ARTERIAL HYPERTENSION
     Dosage: 125 MG, BID
     Route: 048
  12. ASA [Concomitant]
     Active Substance: ASPIRIN

REACTIONS (4)
  - Knee arthroplasty [Unknown]
  - Erythema [Unknown]
  - Swelling [Unknown]
  - Infection [Unknown]

NARRATIVE: CASE EVENT DATE: 20140908
